FAERS Safety Report 6755631-0 (Version None)
Quarter: 2010Q2

REPORT INFORMATION
  Report Type: 
  Country: None (occurrence: None)
  Receive Date: 20100604
  Receipt Date: 20100525
  Transmission Date: 20101027
  Serious: Yes (Hospitalization, Other)
  Sender: FDA-Public Use
  Company Number: US-BAYER-200942872NA

PATIENT
  Age: 39 Year
  Sex: Female
  Weight: 104 kg

DRUGS (11)
  1. YAZ [Suspect]
     Indication: DRUG USE FOR UNKNOWN INDICATION
     Route: 048
     Dates: start: 20080101, end: 20090101
  2. YASMIN [Suspect]
     Indication: DRUG USE FOR UNKNOWN INDICATION
     Route: 048
  3. SINGULAIR [Concomitant]
     Dates: start: 20010101
  4. NASONEX [Concomitant]
     Dates: start: 20050101
  5. IPRATROPIUM [Concomitant]
  6. CLONAZEPAM [Concomitant]
  7. IVEGA [Concomitant]
  8. PAROXETINE HCL [Concomitant]
  9. RESTASIS [Concomitant]
  10. TETRACYCLINE [Concomitant]
  11. WAL-ITIN D [Concomitant]

REACTIONS (2)
  - ABDOMINAL PAIN [None]
  - GALLBLADDER DISORDER [None]
